FAERS Safety Report 8517451-6 (Version None)
Quarter: 2012Q3

REPORT INFORMATION
  Report Type: 
  Country: None (occurrence: None)
  Receive Date: 20120718
  Receipt Date: 20120710
  Transmission Date: 20120928
  Serious: Yes (Death, Other)
  Sender: FDA-Public Use
  Company Number: DE-ROCHE-1078809

PATIENT
  Age: 69 Year
  Sex: Male

DRUGS (8)
  1. COPEGUS [Suspect]
     Dates: start: 20120127
  2. PROPRANOLOL HCL [Concomitant]
  3. COPEGUS [Suspect]
     Indication: HEPATITIS C
     Route: 048
     Dates: start: 20060101, end: 20071201
  4. PANTOPRAZOLE [Concomitant]
  5. TELAPREVIR [Suspect]
     Indication: HEPATITIS C
     Route: 048
     Dates: start: 20120127, end: 20120413
  6. PEGINTERFERON ALFA-2A [Suspect]
     Indication: HEPATITIS C
     Route: 058
     Dates: start: 20060101, end: 20071201
  7. TORSEMIDE [Concomitant]
  8. PEGINTERFERON ALFA-2A [Suspect]
     Dates: start: 20120127

REACTIONS (2)
  - ANAEMIA [None]
  - DEATH [None]
